FAERS Safety Report 9399874 (Version 2)
Quarter: 2013Q3

REPORT INFORMATION
  Report Type: Spontaneous
  Country: GB (occurrence: None)
  Receive Date: 20130710
  Receipt Date: 20130715
  Transmission Date: 20140515
  Serious: Yes (Disabling, Other)
  Sender: FDA-Public Use
  Company Number: AUR-APL-2013-05676

PATIENT
  Age: 41 Year
  Sex: Female
  Weight: 95 kg

DRUGS (7)
  1. SIMVASTATIN [Suspect]
     Indication: BLOOD CHOLESTEROL INCREASED
     Route: 048
  2. FLUVASTATIN [Suspect]
     Indication: BLOOD CHOLESTEROL INCREASED
     Route: 048
  3. AMLODIPINE (AMLODIPINE) [Concomitant]
  4. BENDROFLUMETHIAZIDE (BENDROFLUMETHIAZIDE) [Concomitant]
  5. BISOPROLOL (BISOPROLOL) [Concomitant]
  6. LEVOTHYROXINE (LEVOTHYROXINE) [Concomitant]
  7. METFORMIN (METFORMIN) [Concomitant]

REACTIONS (9)
  - Myalgia [None]
  - Muscle spasms [None]
  - Feeling abnormal [None]
  - Balance disorder [None]
  - Fatigue [None]
  - Back pain [None]
  - Hemiparesis [None]
  - Vision blurred [None]
  - Disturbance in attention [None]
